FAERS Safety Report 7906692-4 (Version None)
Quarter: 2011Q4

REPORT INFORMATION
  Report Type: 
  Country: None (occurrence: None)
  Receive Date: 20111109
  Receipt Date: 20111109
  Transmission Date: 20120403
  Serious: Yes (Life-Threatening, Other)
  Sender: FDA-Public Use
  Company Number: None

PATIENT
  Sex: Female
  Weight: 83.9154 kg

DRUGS (2)
  1. DIOVAN HCT [Suspect]
     Dosage: ONE A DAY TOOK THESE FOR YEARS AND NOW
  2. DIOVAN HCT [Suspect]
     Indication: BLOOD PRESSURE INCREASED
     Dosage: ONE A DAY
     Dates: start: 20110517, end: 20111001

REACTIONS (6)
  - ASTHENIA [None]
  - SINUSITIS [None]
  - BLOOD PRESSURE INCREASED [None]
  - HYPERSENSITIVITY [None]
  - EPISTAXIS [None]
  - DRUG INEFFECTIVE [None]
